FAERS Safety Report 17010444 (Version 1)
Quarter: 2019Q4

REPORT INFORMATION
  Report Type: Spontaneous
  Country: US (occurrence: US)
  Receive Date: 20191107
  Receipt Date: 20191107
  Transmission Date: 20200122
  Serious: Yes (Other)
  Sender: FDA-Public Use
  Company Number: None

PATIENT
  Age: 74 Year
  Sex: Male

DRUGS (12)
  1. BENAZEPRIL TAB 10MG [Concomitant]
     Dates: start: 20191102
  2. FENOFIBRATE TAB 160MG [Concomitant]
     Dates: start: 20190221
  3. NITROGLYCERN SUB 0.4MG [Concomitant]
     Dates: start: 20191102
  4. PANTOPRAZOLE TAB 40MG [Concomitant]
     Dates: start: 20191102
  5. DOK CAP 10MG [Concomitant]
     Dates: start: 20191102
  6. METFORMIN TAB 1000MG [Concomitant]
     Dates: start: 20180924
  7. MAGNESIUM-OX TAB 400MG [Concomitant]
     Dates: start: 20191105
  8. BEXAROTENE. [Suspect]
     Active Substance: BEXAROTENE
     Route: 048
     Dates: start: 20180208
  9. LEVOTHYROXIN TAB 25MC [Concomitant]
     Dates: start: 20190221
  10. CLOPIDOGREL TAB 75MG [Concomitant]
     Dates: start: 20191102
  11. ATORVASTATIN TAB 40MG [Concomitant]
     Dates: start: 20191102
  12. ASPRIN TAB 81MG EC [Concomitant]

REACTIONS (1)
  - Myocardial infarction [None]

NARRATIVE: CASE EVENT DATE: 20191024
